FAERS Safety Report 11061245 (Version 2)
Quarter: 2015Q2

REPORT INFORMATION
  Report Type: Report from Study
  Country: US (occurrence: US)
  Receive Date: 20150424
  Receipt Date: 20150513
  Transmission Date: 20150821
  Serious: Yes (Other)
  Sender: FDA-Public Use
  Company Number: US-AMGEN-USASL2015039408

PATIENT
  Age: 20 Year
  Sex: Female
  Weight: 56.79 kg

DRUGS (17)
  1. MAGNESIUM [Concomitant]
     Active Substance: MAGNESIUM
     Dosage: UNK
     Dates: start: 20111130
  2. ASPIRIN                            /00002701/ [Concomitant]
     Active Substance: ASPIRIN
     Dosage: 81 MG, QD
  3. TYLENOL                            /00435101/ [Concomitant]
     Dosage: 500 MG, AS NECESSARY
     Route: 048
  4. ERGOCALCIFEROL. [Concomitant]
     Active Substance: ERGOCALCIFEROL
     Dosage: UNK
     Route: 048
  5. SYNTHROID [Concomitant]
     Active Substance: LEVOTHYROXINE SODIUM
     Dosage: 75 MCG DAILY
     Route: 048
  6. FLUZONE                            /00780601/ [Concomitant]
     Dosage: UNK
     Dates: start: 20101102
  7. ZINC [Concomitant]
     Active Substance: ZINC\ZINC CHLORIDE
     Dosage: UNK
     Dates: start: 20111130
  8. COUMADIN [Concomitant]
     Active Substance: WARFARIN SODIUM
     Dosage: 2.5 MG, DAILY
  9. HAVRIX A [Concomitant]
     Indication: HEPATITIS A
     Dosage: UNK
     Dates: start: 20120731
  10. CALCIUM [Concomitant]
     Active Substance: CALCIUM
     Dosage: UNK
     Dates: start: 20111130
  11. GARDASIL [Concomitant]
     Active Substance: HUMAN PAPILLOMAVIRUS QUADRIVALENT (TYPES 6, 11, 16, AND 18) VACCINE, RECOMBINANT
  12. VARICELLA VACCINE [Concomitant]
     Active Substance: VARICELLA-ZOSTER VIRUS STRAIN OKA/MERCK LIVE ANTIGEN
     Dosage: UNK
  13. ENBREL [Suspect]
     Active Substance: ETANERCEPT
     Indication: JUVENILE IDIOPATHIC ARTHRITIS
     Dosage: 50 MG, QWK
     Route: 058
     Dates: start: 20061128, end: 20150326
  14. INFL.A(H1N1)2009PAN.MONO.VAC.(WITHOUT ADJU.) [Concomitant]
  15. INFLUENZA [Concomitant]
     Active Substance: INFLUENZA VIRUS VACCINE
  16. CAPOTEN [Concomitant]
     Active Substance: CAPTOPRIL
     Dosage: 25 MG, BID
     Route: 048
  17. FERROUS SULFATE [Concomitant]
     Active Substance: FERROUS SULFATE\FERROUS SULFATE, DRIED
     Dosage: 325 MG, UNK
     Route: 048

REACTIONS (19)
  - Nasopharyngitis [Unknown]
  - Poor quality sleep [Unknown]
  - Depression [Unknown]
  - Immunosuppression [Unknown]
  - Joint effusion [Unknown]
  - Autoimmune thyroiditis [Unknown]
  - Fatigue [Unknown]
  - Malaise [Unknown]
  - Blood iron decreased [Not Recovered/Not Resolved]
  - Snoring [Unknown]
  - Rash [Unknown]
  - Nasal congestion [Unknown]
  - Flat affect [Unknown]
  - Primary hypothyroidism [Unknown]
  - Pain [Unknown]
  - Systemic lupus erythematosus [Unknown]
  - Chronic sinusitis [Unknown]
  - Impaired work ability [Unknown]
  - Sinus congestion [Unknown]

NARRATIVE: CASE EVENT DATE: 2015
